FAERS Safety Report 25432279 (Version 2)
Quarter: 2025Q4

REPORT INFORMATION
  Report Type: Spontaneous
  Country: US (occurrence: US)
  Receive Date: 20250613
  Receipt Date: 20251104
  Transmission Date: 20260117
  Serious: Yes (Other)
  Sender: COOPERSURGICAL
  Company Number: US-COOPERSURGICAL, INC.-2025CPS004733

PATIENT
  Sex: Female
  Weight: 61.678 kg

DRUGS (1)
  1. PARAGARD T 380A [Suspect]
     Active Substance: COPPER
     Indication: Contraception
     Dosage: UNK
     Route: 015
     Dates: start: 20090603

REACTIONS (22)
  - Injury [Not Recovered/Not Resolved]
  - Surgery [Recovered/Resolved]
  - Noninfective oophoritis [Unknown]
  - Superinfection [Unknown]
  - Device breakage [Not Recovered/Not Resolved]
  - Foreign body in reproductive tract [Not Recovered/Not Resolved]
  - Complication of device removal [Not Recovered/Not Resolved]
  - Embedded device [Not Recovered/Not Resolved]
  - Sexual dysfunction [Not Recovered/Not Resolved]
  - Emotional distress [Unknown]
  - Post-traumatic stress disorder [Unknown]
  - Urinary tract infection [Unknown]
  - Vaginal haemorrhage [Unknown]
  - Abdominal distension [Unknown]
  - Pain [Unknown]
  - Pelvic pain [Unknown]
  - Dyspareunia [Unknown]
  - Heavy menstrual bleeding [Unknown]
  - Abnormal uterine bleeding [Unknown]
  - Bacterial vaginosis [Unknown]
  - Vaginal infection [Unknown]
  - Menstruation irregular [Unknown]

NARRATIVE: CASE EVENT DATE: 20140101
